FAERS Safety Report 8934946 (Version 1)
Quarter: 2012Q4

REPORT INFORMATION
  Report Type: 
  Country: US (occurrence: US)
  Receive Date: 20121129
  Receipt Date: 20121129
  Transmission Date: 20130627
  Serious: No
  Sender: FDA-Public Use
  Company Number: US-009507513-1211USA012337

PATIENT
  Age: 5 Year
  Sex: Female
  Weight: 17.69 kg

DRUGS (1)
  1. CLARITIN CHEWABLE TABLETS [Suspect]
     Indication: HYPERSENSITIVITY
     Dosage: 25 mg, Once
     Route: 048
     Dates: start: 20121006

REACTIONS (2)
  - Psychomotor hyperactivity [Recovering/Resolving]
  - Overdose [Unknown]
